FAERS Safety Report 25359713 (Version 1)
Quarter: 2025Q2

REPORT INFORMATION
  Report Type: Report from Study
  Country: ZA (occurrence: ZA)
  Receive Date: 20250526
  Receipt Date: 20250526
  Transmission Date: 20250717
  Serious: Yes (Hospitalization)
  Sender: ALEXION PHARMACEUTICALS
  Company Number: ZA-AstraZeneca-CH-00874370A

PATIENT
  Age: 86 Year

DRUGS (5)
  1. BUDESONIDE\FORMOTEROL [Suspect]
     Active Substance: BUDESONIDE\FORMOTEROL
     Indication: Asthma
  2. PANTOPRAZOLE SODIUM [Concomitant]
     Active Substance: PANTOPRAZOLE SODIUM
     Indication: Ulcer
     Route: 065
  3. URISPAS [Concomitant]
     Active Substance: FLAVOXATE HYDROCHLORIDE
     Indication: Hypertonic bladder
  4. ETORICOXIB [Concomitant]
     Active Substance: ETORICOXIB
     Indication: Pain
  5. ALDACTONE [Concomitant]
     Active Substance: SPIRONOLACTONE
     Indication: Hypertension

REACTIONS (4)
  - Cardiac failure [Unknown]
  - Hypoacusis [Unknown]
  - Arthralgia [Unknown]
  - Therapy interrupted [Unknown]
